FAERS Safety Report 12922727 (Version 1)
Quarter: 2016Q4

REPORT INFORMATION
  Report Type: Spontaneous
  Country: CN (occurrence: CN)
  Receive Date: 20161109
  Receipt Date: 20161109
  Transmission Date: 20170207
  Serious: Yes (Hospitalization)
  Sender: FDA-Public Use
  Company Number: CN-ASTRAZENECA-2016SF16843

PATIENT
  Age: 15705 Day
  Sex: Male
  Weight: 54 kg

DRUGS (5)
  1. CHLORPROTHIXENE [Concomitant]
     Active Substance: CHLORPROTHIXENE
  2. AMISULPRIDE [Concomitant]
     Active Substance: AMISULPRIDE
  3. PROMETHAZINE HYDROCHLORIDE. [Concomitant]
     Active Substance: PROMETHAZINE HYDROCHLORIDE
     Indication: MENTAL DISORDER
     Route: 048
     Dates: start: 20160316, end: 20160321
  4. SEROQUEL [Suspect]
     Active Substance: QUETIAPINE FUMARATE
     Indication: MENTAL DISORDER
     Route: 048
     Dates: start: 20160310, end: 20160320
  5. CLONAZEPAM. [Concomitant]
     Active Substance: CLONAZEPAM
     Indication: MENTAL DISORDER
     Route: 048
     Dates: start: 20160316, end: 20160421

REACTIONS (3)
  - Pyrexia [Unknown]
  - Dermatitis allergic [Recovered/Resolved]
  - C-reactive protein increased [Unknown]

NARRATIVE: CASE EVENT DATE: 20160320
